FAERS Safety Report 8121708-0 (Version None)
Quarter: 2012Q1

REPORT INFORMATION
  Report Type: 
  Country: None (occurrence: None)
  Receive Date: 20120207
  Receipt Date: 20120207
  Transmission Date: 20120608
  Serious: No
  Sender: FDA-Public Use
  Company Number: None

PATIENT
  Age: 79 Year
  Sex: Female
  Weight: 86.1834 kg

DRUGS (1)
  1. PRADAXA [Suspect]
     Indication: ATRIAL FIBRILLATION
     Dosage: 1 TABLET 2 X DAILY 1AM 1PM
     Dates: start: 20111121, end: 20111122

REACTIONS (6)
  - APPARENT DEATH [None]
  - GASTROINTESTINAL PAIN [None]
  - ABDOMINAL DISCOMFORT [None]
  - DYSPNOEA [None]
  - NAUSEA [None]
  - THROAT TIGHTNESS [None]
